FAERS Safety Report 4502250-2 (Version None)
Quarter: 2004Q4

REPORT INFORMATION
  Report Type: 
  Country: None (occurrence: None)
  Receive Date: 20041109
  Receipt Date: 20041027
  Transmission Date: 20050328
  Serious: Yes (Hospitalization)
  Sender: FDA-Public Use
  Company Number: US_0410107286

PATIENT
  Age: 40 Year
  Sex: Male

DRUGS (2)
  1. OLANZAPINE [Suspect]
     Indication: SCHIZOPHRENIA, PARANOID TYPE
     Dosage: 15 MG DAY
     Route: 048
  2. CLOZAPINE [Concomitant]

REACTIONS (10)
  - ALANINE AMINOTRANSFERASE INCREASED [None]
  - ASPARTATE AMINOTRANSFERASE INCREASED [None]
  - BILIRUBIN CONJUGATED INCREASED [None]
  - BLOOD BILIRUBIN INCREASED [None]
  - HYPOPROTEINAEMIA [None]
  - LIVER FUNCTION TEST ABNORMAL [None]
  - MEAN CELL VOLUME ABNORMAL [None]
  - PANCYTOPENIA [None]
  - VITAMIN B12 DEFICIENCY [None]
  - WEIGHT INCREASED [None]
